FAERS Safety Report 7644751-4 (Version None)
Quarter: 2011Q3

REPORT INFORMATION
  Report Type: 
  Country: None (occurrence: None)
  Receive Date: 20110729
  Receipt Date: 20110720
  Transmission Date: 20111222
  Serious: Yes (Hospitalization)
  Sender: FDA-Public Use
  Company Number: US-ABBOTT-11P-163-0841008-00

PATIENT
  Age: 47 Year
  Sex: Male

DRUGS (11)
  1. ADVAIR DISKUS 100/50 [Concomitant]
     Indication: CHRONIC OBSTRUCTIVE PULMONARY DISEASE
     Dosage: 250/50MG, 2 IN 1 DAYS
  2. BYETTA [Concomitant]
     Indication: DIABETES MELLITUS
  3. LASIX [Concomitant]
     Indication: FLUID RETENTION
  4. OXYGEN [Concomitant]
     Indication: PRODUCT USED FOR UNKNOWN INDICATION
     Dosage: AT ALL TIMES
  5. DILTIAZEM [Concomitant]
     Indication: HYPERTENSION
     Dosage: DAILY
  6. ZOLOFT [Concomitant]
     Indication: DEPRESSION
     Dosage: DAILY
  7. HUMIRA [Suspect]
     Indication: PSORIASIS
     Dates: start: 20090101, end: 20110501
  8. VENTOLIN HFA [Concomitant]
     Indication: CHRONIC OBSTRUCTIVE PULMONARY DISEASE
  9. METFORMIN HCL [Concomitant]
     Indication: DIABETES MELLITUS
  10. SIMVASTATIN [Concomitant]
     Indication: BLOOD CHOLESTEROL INCREASED
     Dosage: DAILY
  11. DIGOXIN [Concomitant]
     Indication: CARDIAC FAILURE CONGESTIVE
     Dosage: DAILY

REACTIONS (4)
  - MALAISE [None]
  - ORAL INFECTION [None]
  - HEPATIC FAILURE [None]
  - ANAEMIA [None]
